FAERS Safety Report 17207082 (Version 2)
Quarter: 2020Q1

REPORT INFORMATION
  Report Type: Spontaneous
  Country: SE (occurrence: SE)
  Receive Date: 20191227
  Receipt Date: 20200107
  Transmission Date: 20200409
  Serious: Yes (Hospitalization)
  Sender: FDA-Public Use
  Company Number: SE-MYLANLABS-2019M1129387

PATIENT
  Age: 16 Year
  Sex: Female

DRUGS (2)
  1. CITALOPRAM [Concomitant]
     Active Substance: CITALOPRAM HYDROBROMIDE
     Dosage: UNK
  2. LERGIGAN (PROMETHAZINE) [Suspect]
     Active Substance: PROMETHAZINE HYDROCHLORIDE
     Indication: PRODUCT USED FOR UNKNOWN INDICATION
     Dosage: 7 X 25 MG YESTERDAY (^50 S 175 MG^)
     Route: 048
     Dates: start: 20180412, end: 20180412

REACTIONS (7)
  - Diplopia [Unknown]
  - Dysarthria [Unknown]
  - Lethargy [Unknown]
  - Fatigue [Unknown]
  - Intentional self-injury [Unknown]
  - Dry mouth [Unknown]
  - Intentional overdose [Unknown]

NARRATIVE: CASE EVENT DATE: 201804
